FAERS Safety Report 18898623 (Version 1)
Quarter: 2021Q1

REPORT INFORMATION
  Report Type: Other
  Country: PL (occurrence: PL)
  Receive Date: 20210216
  Receipt Date: 20210216
  Transmission Date: 20210420
  Serious: Yes (Other)
  Sender: FDA-Public Use
  Company Number: PL-ROCHE-2766911

PATIENT

DRUGS (5)
  1. AZATHIOPRINE. [Suspect]
     Active Substance: AZATHIOPRINE
     Indication: ANTI-NEUTROPHIL CYTOPLASMIC ANTIBODY POSITIVE VASCULITIS
     Route: 065
  2. CYCLOPHOSPHAMIDE. [Suspect]
     Active Substance: CYCLOPHOSPHAMIDE
     Indication: ANTI-NEUTROPHIL CYTOPLASMIC ANTIBODY POSITIVE VASCULITIS
     Route: 065
  3. RITUXIMAB. [Suspect]
     Active Substance: RITUXIMAB
     Indication: ANTI-NEUTROPHIL CYTOPLASMIC ANTIBODY POSITIVE VASCULITIS
     Route: 065
  4. MYCOPHENOLATE MOFETIL. [Suspect]
     Active Substance: MYCOPHENOLATE MOFETIL
     Indication: ANTI-NEUTROPHIL CYTOPLASMIC ANTIBODY POSITIVE VASCULITIS
     Route: 065
  5. METHYLPREDNISOLONE. [Suspect]
     Active Substance: METHYLPREDNISOLONE
     Indication: ANTI-NEUTROPHIL CYTOPLASMIC ANTIBODY POSITIVE VASCULITIS
     Route: 065

REACTIONS (34)
  - Tuberculosis [Unknown]
  - Thrombocytopenia [Unknown]
  - Skin infection [Unknown]
  - Upper respiratory tract infection [Unknown]
  - Abdominal pain upper [Unknown]
  - Gastrointestinal inflammation [Unknown]
  - Neuropathy peripheral [Unknown]
  - Headache [Unknown]
  - Mental disorder [Unknown]
  - Skin cancer [Unknown]
  - Interstitial lung disease [Unknown]
  - Urinary tract infection [Unknown]
  - Genital infection [Unknown]
  - Influenza like illness [Unknown]
  - Lymphoma [Unknown]
  - Leukaemia [Unknown]
  - Sepsis [Unknown]
  - Demyelination [Unknown]
  - Vertigo [Unknown]
  - Fatigue [Unknown]
  - Gastrointestinal infection [Unknown]
  - Central nervous system infection [Unknown]
  - Rash [Unknown]
  - Infection [Unknown]
  - Liver function test abnormal [Unknown]
  - Nausea [Unknown]
  - Vomiting [Unknown]
  - Pyrexia [Unknown]
  - Epilepsy [Unknown]
  - Leukoencephalopathy [Unknown]
  - Muscle spasticity [Unknown]
  - Urticaria [Unknown]
  - Injection site rash [Unknown]
  - Leukopenia [Unknown]
